FAERS Safety Report 19148515 (Version 1)
Quarter: 2021Q2

REPORT INFORMATION
  Report Type: Spontaneous
  Country: RO (occurrence: RO)
  Receive Date: 20210416
  Receipt Date: 20210416
  Transmission Date: 20210717
  Serious: Yes (Death)
  Sender: FDA-Public Use
  Company Number: RO-ROCHE-2812002

PATIENT
  Age: 85 Year
  Sex: Male

DRUGS (5)
  1. ETANERCEPT [Concomitant]
     Active Substance: ETANERCEPT
  2. CERTOLIZUMAB [Concomitant]
     Active Substance: CERTOLIZUMAB
  3. METHOTREXATE. [Concomitant]
     Active Substance: METHOTREXATE
  4. ROACTEMRA [Suspect]
     Active Substance: TOCILIZUMAB
     Indication: RHEUMATOID ARTHRITIS
     Route: 058
     Dates: start: 20190425
  5. ADALIMUMAB [Concomitant]
     Active Substance: ADALIMUMAB

REACTIONS (1)
  - Myocardial infarction [Fatal]

NARRATIVE: CASE EVENT DATE: 202010
